FAERS Safety Report 4290375-9 (Version None)
Quarter: 2004Q1

REPORT INFORMATION
  Report Type: 
  Country: None (occurrence: None)
  Receive Date: 20040210
  Receipt Date: 20031203
  Transmission Date: 20041129
  Serious: Yes (Hospitalization, Other)
  Sender: FDA-Public Use
  Company Number: PHNU2003DE04287

PATIENT
  Age: 56 Year
  Sex: Male
  Weight: 103 kg

DRUGS (3)
  1. CLOZARIL [Suspect]
     Indication: SCHIZOPHRENIA
     Dosage: 450MG/DAY
     Route: 048
  2. CLOZARIL [Suspect]
     Dosage: 200MG/DAY
     Route: 048
  3. HALDOL [Concomitant]
     Indication: SCHIZOPHRENIA
     Dosage: 20 MG/DAY
     Dates: start: 20031201

REACTIONS (8)
  - C-REACTIVE PROTEIN INCREASED [None]
  - DISORIENTATION [None]
  - FALL [None]
  - HEAD INJURY [None]
  - OVERDOSE [None]
  - PNEUMONIA [None]
  - RESTLESSNESS [None]
  - SOMNOLENCE [None]
